FAERS Safety Report 16558557 (Version 2)
Quarter: 2019Q3

REPORT INFORMATION
  Report Type: Spontaneous
  Country: KR (occurrence: KR)
  Receive Date: 20190711
  Receipt Date: 20190718
  Transmission Date: 20191004
  Serious: Yes (Other)
  Sender: FDA-Public Use
  Company Number: KR-PFIZER INC-2019291070

PATIENT
  Sex: Female

DRUGS (1)
  1. CADUET [Suspect]
     Active Substance: AMLODIPINE BESYLATE\ATORVASTATIN CALCIUM
     Indication: HYPERTENSION
     Dosage: 5/10 MG
     Route: 048

REACTIONS (3)
  - Gingival abscess [Unknown]
  - Gingival bleeding [Unknown]
  - Gingival swelling [Unknown]

NARRATIVE: CASE EVENT DATE: 2019
